FAERS Safety Report 7826514-X (Version None)
Quarter: 2011Q4

REPORT INFORMATION
  Report Type: 
  Country: None (occurrence: None)
  Receive Date: 20111020
  Receipt Date: 20110916
  Transmission Date: 20120403
  Serious: No
  Sender: FDA-Public Use
  Company Number: US-BAYER-2011-008396

PATIENT
  Sex: Male
  Weight: 95 kg

DRUGS (4)
  1. BENADRYL HCL [Concomitant]
  2. ALEVE (CAPLET) [Suspect]
     Indication: MUSCULOSKELETAL PAIN
  3. ALEVE (CAPLET) [Suspect]
     Indication: NASOPHARYNGITIS
     Route: 048
  4. ASPIRIN [Concomitant]

REACTIONS (1)
  - NO ADVERSE EVENT [None]
